FAERS Safety Report 8837198 (Version 2)
Quarter: 2015Q3

REPORT INFORMATION
  Report Type: Report from Study
  Country: US (occurrence: US)
  Receive Date: 20121011
  Receipt Date: 20150811
  Transmission Date: 20151125
  Serious: Yes (Other)
  Sender: FDA-Public Use
  Company Number: US-ROCHE-1132728

PATIENT
  Sex: Male
  Weight: 58.9 kg

DRUGS (4)
  1. NUTROPIN [Suspect]
     Active Substance: SOMATROPIN
     Indication: BODY HEIGHT BELOW NORMAL
     Dosage: 0.38 CC
     Route: 058
  2. NUTROPIN [Suspect]
     Active Substance: SOMATROPIN
     Dosage: 0.46 CC
     Route: 058
  3. DEPAKOTE [Concomitant]
     Active Substance: DIVALPROEX SODIUM
     Dosage: MORNING 325 MG AND EVENING 625 MG
     Route: 065
  4. CYCLOSPORIN [Concomitant]
     Active Substance: CYCLOSPORINE

REACTIONS (3)
  - Seizure [Unknown]
  - Back pain [Unknown]
  - Headache [Unknown]
